FAERS Safety Report 4310450-X (Version None)
Quarter: 2004Q1

REPORT INFORMATION
  Report Type: 
  Country: None (occurrence: None)
  Receive Date: 20040302
  Receipt Date: 20040217
  Transmission Date: 20041129
  Serious: Yes (Hospitalization)
  Sender: FDA-Public Use
  Company Number: 104004ISR

PATIENT
  Age: 80 Year
  Sex: Male

DRUGS (6)
  1. ETOPOSIDE [Suspect]
     Indication: SMALL CELL LUNG CANCER STAGE UNSPECIFIED
     Dosage: 157 MILLIGRAMS
     Dates: start: 20040126
  2. FENOFIBRATE [Concomitant]
  3. ALTIZIDE [Concomitant]
  4. SPIRONOLACTONE [Concomitant]
  5. PANTOPRAZOLE SODIUM [Concomitant]
  6. PANTOPRAZOLE [Concomitant]

REACTIONS (1)
  - EPILEPSY [None]
